FAERS Safety Report 14952337 (Version 1)
Quarter: 2018Q2

REPORT INFORMATION
  Report Type: Spontaneous
  Country: US (occurrence: US)
  Receive Date: 20180530
  Receipt Date: 20180530
  Transmission Date: 20180711
  Serious: No
  Sender: FDA-Public Use
  Company Number: US-PFIZER INC-2018215211

PATIENT
  Age: 58 Year
  Sex: Male
  Weight: 122.47 kg

DRUGS (2)
  1. CHANTIX [Suspect]
     Active Substance: VARENICLINE TARTRATE
     Indication: SMOKING CESSATION THERAPY
     Dosage: 1 DF, DAILY (TAKE ONE PILL ONCE A DAY FOR THREE DAYS)
  2. CHANTIX [Suspect]
     Active Substance: VARENICLINE TARTRATE
     Dosage: 1 DF, 2X/DAY (ON THE FOURTH DAY, TAKE ONE PILL TWICE A DAY)

REACTIONS (4)
  - Drug ineffective [Unknown]
  - Depression [Unknown]
  - Dyspnoea [Unknown]
  - Mental disorder [Unknown]
